FAERS Safety Report 6708555-9 (Version None)
Quarter: 2010Q2

REPORT INFORMATION
  Report Type: 
  Country: None (occurrence: None)
  Receive Date: 20100503
  Receipt Date: 20100423
  Transmission Date: 20101027
  Serious: Yes (Death, Other)
  Sender: FDA-Public Use
  Company Number: US-PFIZER INC-2010032275

PATIENT
  Sex: Male

DRUGS (5)
  1. NEURONTIN [Interacting]
     Indication: HEADACHE
     Dosage: 1200 MG, 3X/DAY
  2. TRAMADOL [Interacting]
     Dosage: 50 MG, 3X/DAY
  3. LIDODERM [Suspect]
     Dosage: UNK
  4. OXYCODONE [Interacting]
     Dosage: 10 MG, 3X/DAY
  5. FENTANYL [Interacting]
     Dosage: 75 MCG, UNK

REACTIONS (11)
  - CARDIAC DISORDER [None]
  - CEREBROVASCULAR ACCIDENT [None]
  - DEMENTIA [None]
  - DRUG INTERACTION [None]
  - EMBOLISM [None]
  - FLUID RETENTION [None]
  - MULTI-ORGAN FAILURE [None]
  - OVERDOSE [None]
  - RESPIRATORY ARREST [None]
  - SOMNOLENCE [None]
  - VOMITING [None]
